FAERS Safety Report 7081430-9 (Version None)
Quarter: 2010Q4

REPORT INFORMATION
  Report Type: 
  Country: None (occurrence: None)
  Receive Date: 20101102
  Receipt Date: 20101102
  Transmission Date: 20110411
  Serious: Yes (Other)
  Sender: FDA-Public Use
  Company Number: None

PATIENT
  Age: 27 Year
  Sex: Male
  Weight: 81.6475 kg

DRUGS (1)
  1. PROPECIA [Suspect]
     Indication: ALOPECIA
     Dosage: 1MG  1/DAY PO
     Route: 048
     Dates: start: 20070101, end: 20101018

REACTIONS (2)
  - ERECTILE DYSFUNCTION [None]
  - MENTAL DISORDER [None]
